FAERS Safety Report 10017496 (Version 1)
Quarter: 2014Q1

REPORT INFORMATION
  Report Type: Spontaneous
  Country: ES (occurrence: ES)
  Receive Date: 20140318
  Receipt Date: 20140318
  Transmission Date: 20141002
  Serious: Yes (Other)
  Sender: FDA-Public Use
  Company Number: ES-ROCHE-1367144

PATIENT
  Age: 50 Year
  Sex: Female

DRUGS (2)
  1. TENECTEPLASE [Suspect]
     Indication: ACUTE MYOCARDIAL INFARCTION
     Route: 065
  2. STROGEN [Concomitant]
     Route: 065

REACTIONS (2)
  - Drug ineffective [Unknown]
  - Vascular pseudoaneurysm [Recovered/Resolved]
